FAERS Safety Report 14453553 (Version 1)
Quarter: 2018Q1

REPORT INFORMATION
  Report Type: Spontaneous
  Country: CZ (occurrence: CZ)
  Receive Date: 20180129
  Receipt Date: 20180129
  Transmission Date: 20180509
  Serious: Yes (Other)
  Sender: FDA-Public Use
  Company Number: CZ-FRESENIUS KABI-FK201800877

PATIENT
  Age: 35 Year
  Sex: Female

DRUGS (4)
  1. PALONOSETRON. [Concomitant]
     Active Substance: PALONOSETRON HYDROCHLORIDE
     Indication: SQUAMOUS CELL CARCINOMA OF THE VAGINA
  2. CISPLATIN (MANUFACTURER UNKNOWN) [Suspect]
     Active Substance: CISPLATIN
     Indication: SQUAMOUS CELL CARCINOMA OF THE VAGINA
     Route: 065
  3. FLUOROURACIL. [Suspect]
     Active Substance: FLUOROURACIL
     Indication: SQUAMOUS CELL CARCINOMA OF THE VAGINA
  4. APREPITANT. [Concomitant]
     Active Substance: APREPITANT
     Indication: PRODUCT USED FOR UNKNOWN INDICATION

REACTIONS (3)
  - Tinnitus [Unknown]
  - Gastrointestinal toxicity [Unknown]
  - Disease progression [Unknown]
